FAERS Safety Report 4303382-4 (Version None)
Quarter: 2004Q1

REPORT INFORMATION
  Report Type: 
  Country: None (occurrence: None)
  Receive Date: 20040224
  Receipt Date: 20040212
  Transmission Date: 20041129
  Serious: Yes (Hospitalization)
  Sender: FDA-Public Use
  Company Number: 04P-056-0250326-00

PATIENT
  Age: 72 Year
  Sex: Male

DRUGS (2)
  1. DEPAKENE [Suspect]
     Indication: HEAD INJURY
     Dosage: 500 MG, 3 IN 1 D, ORAL
     Route: 048
     Dates: start: 19990701, end: 20010901
  2. ACENOCOUMAROL [Concomitant]

REACTIONS (5)
  - ABASIA [None]
  - ASTHENIA [None]
  - BEDRIDDEN [None]
  - GENERAL PHYSICAL HEALTH DETERIORATION [None]
  - SOMNOLENCE [None]
